FAERS Safety Report 21211007 (Version 1)
Quarter: 2022Q3

REPORT INFORMATION
  Report Type: Spontaneous
  Country: US (occurrence: None)
  Receive Date: 20220812
  Receipt Date: 20220812
  Transmission Date: 20221027
  Serious: Yes (Hospitalization)
  Sender: FDA-Public Use
  Company Number: None

PATIENT
  Sex: Male
  Weight: 76 kg

DRUGS (2)
  1. AZACITIDINE [Suspect]
     Active Substance: AZACITIDINE
  2. VENETOXLAX (ABT-199) [Concomitant]

REACTIONS (3)
  - Immune thrombocytopenia [None]
  - Dizziness [None]
  - Hypotension [None]

NARRATIVE: CASE EVENT DATE: 20220808
